FAERS Safety Report 16725151 (Version 1)
Quarter: 2019Q4

REPORT INFORMATION
  Report Type: Spontaneous
  Country: US (occurrence: US)
  Receive Date: 20190820
  Receipt Date: 20190820
  Transmission Date: 20200122
  Serious: No
  Sender: FDA-Public Use
  Company Number: None

PATIENT
  Age: 26 Year
  Sex: Male

DRUGS (2)
  1. NALOXEGOL [Concomitant]
     Active Substance: NALOXEGOL
     Dates: start: 20190807, end: 20190819
  2. SUBLOCADE [Suspect]
     Active Substance: BUPRENORPHINE
     Dosage: ?          OTHER FREQUENCY:MONTHLY;?
     Route: 058
     Dates: start: 20190718, end: 20190818

REACTIONS (1)
  - Constipation [None]

NARRATIVE: CASE EVENT DATE: 20190819
